FAERS Safety Report 7388679-6 (Version None)
Quarter: 2011Q2

REPORT INFORMATION
  Report Type: 
  Country: None (occurrence: None)
  Receive Date: 20110401
  Receipt Date: 20110322
  Transmission Date: 20111010
  Serious: Yes (Hospitalization)
  Sender: FDA-Public Use
  Company Number: FR-JNJFOC-20110309979

PATIENT
  Age: 81 Year
  Sex: Male

DRUGS (5)
  1. HYDROCORTISONE [Concomitant]
     Route: 065
  2. NIZORAL [Suspect]
     Indication: PROSTATE CANCER
     Route: 048
     Dates: start: 20110211, end: 20110217
  3. PREVISCAN (FLUINDIONE) [Concomitant]
     Route: 065
  4. INIPOMP [Concomitant]
     Route: 065
  5. TOPALGIC [Concomitant]
     Route: 065

REACTIONS (4)
  - THROMBOCYTOPENIA [None]
  - OVERDOSE [None]
  - OFF LABEL USE [None]
  - ANAEMIA [None]
